FAERS Safety Report 6182388-7 (Version None)
Quarter: 2009Q2

REPORT INFORMATION
  Report Type: 
  Country: None (occurrence: None)
  Receive Date: 20090505
  Receipt Date: 20090505
  Transmission Date: 20091009
  Serious: Yes (Hospitalization)
  Sender: FDA-Public Use
  Company Number: None

PATIENT
  Age: 61 Year
  Sex: Female
  Weight: 73 kg

DRUGS (1)
  1. IOVERSOL [Suspect]
     Dates: start: 20090430, end: 20090430

REACTIONS (6)
  - CONTRAST MEDIA REACTION [None]
  - DYSPNOEA [None]
  - HYPERHIDROSIS [None]
  - PRURITUS [None]
  - RASH [None]
  - URTICARIA [None]
